FAERS Safety Report 23619445 (Version 11)
Quarter: 2024Q4

REPORT INFORMATION
  Report Type: Report from Study
  Country: CA (occurrence: CA)
  Receive Date: 20240311
  Receipt Date: 20241101
  Transmission Date: 20250115
  Serious: Yes (Hospitalization, Other)
  Sender: GLAXOSMITHKLINE
  Company Number: CA-GLAXOSMITHKLINE-CA2024029024

PATIENT

DRUGS (4)
  1. MEPOLIZUMAB [Suspect]
     Active Substance: MEPOLIZUMAB
     Indication: Asthma
     Dosage: 100 MG, Q4W
     Route: 058
     Dates: start: 20240205
  2. MEPOLIZUMAB [Suspect]
     Active Substance: MEPOLIZUMAB
     Indication: Asthma
     Dosage: 100 MG, Q4W
     Route: 058
  3. MEPOLIZUMAB [Suspect]
     Active Substance: MEPOLIZUMAB
     Indication: Asthma
     Dosage: 100 MG, Q4W
     Route: 058
  4. MEPOLIZUMAB [Suspect]
     Active Substance: MEPOLIZUMAB
     Indication: Asthma
     Dosage: 100 MG, Q4W
     Route: 058
     Dates: end: 20241028

REACTIONS (20)
  - Pneumonia [Not Recovered/Not Resolved]
  - Foot fracture [Unknown]
  - Arthropathy [Unknown]
  - Dyspnoea [Unknown]
  - Fall [Unknown]
  - Tremor [Unknown]
  - Suicidal ideation [Unknown]
  - Pulmonary mass [Unknown]
  - Wheezing [Recovering/Resolving]
  - Pyrexia [Unknown]
  - Feeling abnormal [Unknown]
  - Feeling cold [Unknown]
  - Blood pressure decreased [Unknown]
  - Oxygen saturation decreased [Unknown]
  - Malaise [Unknown]
  - Swelling face [Unknown]
  - Fatigue [Unknown]
  - Limb injury [Unknown]
  - Wound complication [Unknown]
  - Drug ineffective [Unknown]

NARRATIVE: CASE EVENT DATE: 20240304
